FAERS Safety Report 4421409-6 (Version None)
Quarter: 2004Q3

REPORT INFORMATION
  Report Type: 
  Country: None (occurrence: None)
  Receive Date: 20040709
  Receipt Date: 20040604
  Transmission Date: 20050211
  Serious: No
  Sender: FDA-Public Use
  Company Number: 2004S1000118

PATIENT
  Age: 86 Year
  Sex: Female
  Weight: 61 kg

DRUGS (4)
  1. CUBICIN [Suspect]
     Indication: ARTHRITIS INFECTIVE
     Dosage: 300 MG; Q24H; IV
     Route: 042
     Dates: start: 20040515, end: 20040601
  2. CUBICIN [Suspect]
     Indication: STAPHYLOCOCCAL INFECTION
     Dosage: 300 MG; Q24H; IV
     Route: 042
     Dates: start: 20040515, end: 20040601
  3. VANCOMYCIN [Concomitant]
  4. ROCEPHIN [Concomitant]

REACTIONS (1)
  - BLOOD CREATINE PHOSPHOKINASE INCREASED [None]
